FAERS Safety Report 15140075 (Version 1)
Quarter: 2018Q3

REPORT INFORMATION
  Report Type: Spontaneous
  Country: US (occurrence: US)
  Receive Date: 20180713
  Receipt Date: 20180713
  Transmission Date: 20181010
  Serious: No
  Sender: FDA-Public Use
  Company Number: US-SA-2018SA132962

PATIENT
  Sex: Female

DRUGS (1)
  1. SODIUM FLUORIDE. [Suspect]
     Active Substance: SODIUM FLUORIDE
     Dosage: UNK UNK,UNK

REACTIONS (2)
  - Mouth ulceration [Unknown]
  - Product taste abnormal [Unknown]
